FAERS Safety Report 7583128 (Version 2)
Quarter: 2014Q1

REPORT INFORMATION
  Report Type: Spontaneous
  Country: US (occurrence: US)
  Receive Date: 20100914
  Receipt Date: 20140204
  Transmission Date: 20141002
  Serious: Yes (Other)
  Sender: FDA-Public Use
  Company Number: US-BAYER-201033285NA

PATIENT
  Age: 21 Year
  Sex: Female

DRUGS (3)
  1. YAZ [Suspect]
     Indication: PRODUCT USED FOR UNKNOWN INDICATION
     Route: 048
     Dates: start: 200207
  2. NECON [Concomitant]
  3. ZITHROMAX [Concomitant]
     Indication: BRONCHITIS

REACTIONS (2)
  - Gallbladder injury [Unknown]
  - Cholecystitis chronic [None]
